FAERS Safety Report 4599122-4 (Version None)
Quarter: 2005Q1

REPORT INFORMATION
  Report Type: 
  Country: None (occurrence: None)
  Receive Date: 20050302
  Receipt Date: 20050221
  Transmission Date: 20050727
  Serious: Yes (Life-Threatening)
  Sender: FDA-Public Use
  Company Number: 2005-02-1254

PATIENT
  Age: 46 Year
  Sex: Male

DRUGS (2)
  1. PEG-INTRON [Suspect]
     Indication: HEPATITIS VIRAL
     Dosage: 80 MCG QWK; SUBCUTANEOUS
     Route: 058
     Dates: start: 20041022, end: 20050124
  2. REBETOL [Suspect]
     Indication: HEPATITIS VIRAL
     Dosage: 1200 MG QD; ORAL
     Route: 048
     Dates: start: 20041022, end: 20050124

REACTIONS (7)
  - DYSGEUSIA [None]
  - GASTROINTESTINAL DISORDER [None]
  - MYALGIA [None]
  - NERVOUSNESS [None]
  - PAROSMIA [None]
  - SLEEP DISORDER [None]
  - SUICIDE ATTEMPT [None]
